FAERS Safety Report 9243192 (Version 2)
Quarter: 2013Q4

REPORT INFORMATION
  Report Type: Spontaneous
  Country: GB (occurrence: GB)
  Receive Date: 20130419
  Receipt Date: 20131025
  Transmission Date: 20140711
  Serious: Yes (Hospitalization)
  Sender: FDA-Public Use
  Company Number: GB-PFIZER INC-2013121805

PATIENT
  Age: 72 Year
  Sex: Female
  Weight: 57 kg

DRUGS (15)
  1. PREGABALIN [Suspect]
     Dosage: 50 MG, 1X/DAY
     Route: 048
     Dates: start: 20130214, end: 20130221
  2. ACENOCOUMAROL [Suspect]
     Indication: AORTIC VALVE REPLACEMENT
     Dosage: VARIABLE DOSE OF 2-7 MG
     Route: 048
     Dates: start: 20130225, end: 20130325
  3. CO-CODAMOL [Concomitant]
  4. DIAZEPAM [Concomitant]
     Indication: MUSCLE SPASMS
     Dosage: UNK, TAKEN OCCASIONALLY
  5. DIGOXIN [Concomitant]
  6. DILZEM SR [Concomitant]
  7. FERROUS FUMARATE [Concomitant]
     Dates: start: 20130307
  8. FUROSEMIDE [Concomitant]
  9. LEVOTHYROXINE [Concomitant]
  10. OMEPRAZOLE [Concomitant]
     Dosage: 1 DF, 1X/DAY
  11. PANTOPRAZOLE [Concomitant]
     Dosage: UNK, ONCE OR TWICE
  12. SPIRONOLACTONE [Concomitant]
  13. TAMOXIFEN [Concomitant]
  14. AMITRIPTYLINE [Concomitant]
     Dosage: 10 MG, SINGLE
     Dates: start: 20130201
  15. BEROCCA [Concomitant]
     Dosage: UNK, OCCASIONAL

REACTIONS (6)
  - International normalised ratio decreased [Recovering/Resolving]
  - Headache [Unknown]
  - Blood pressure increased [Unknown]
  - Malaise [Unknown]
  - Body temperature increased [Unknown]
  - Product substitution issue [Unknown]
